FAERS Safety Report 23235474 (Version 1)
Quarter: 2023Q4

REPORT INFORMATION
  Report Type: Spontaneous
  Country: US (occurrence: US)
  Receive Date: 20231128
  Receipt Date: 20231128
  Transmission Date: 20240110
  Serious: Yes (Other)
  Sender: FDA-Public Use
  Company Number: US-PFIZER INC-202300405366

PATIENT
  Age: 61 Year
  Sex: Male

DRUGS (6)
  1. GEMTUZUMAB OZOGAMICIN [Suspect]
     Active Substance: GEMTUZUMAB OZOGAMICIN
     Indication: Acute myeloid leukaemia
     Dosage: (UP TO ONE 4.5 MG VIAL) ON DAYS 1, 4 AND 7)
     Route: 042
  2. CYTARABINE [Suspect]
     Active Substance: CYTARABINE
     Indication: Acute myeloid leukaemia
     Dosage: CONTINUOUS INFUSION IV FOR 7 DAYS
     Route: 042
  3. DAUNORUBICIN [Suspect]
     Active Substance: DAUNORUBICIN
     Indication: Acute myeloid leukaemia
     Dosage: FOR 3 DAYS
     Route: 042
  4. ACETAMINOPHEN [Concomitant]
     Active Substance: ACETAMINOPHEN
     Indication: Premedication
     Dosage: UNK
  5. DIPHENHYDRAMINE [Concomitant]
     Active Substance: DIPHENHYDRAMINE
     Indication: Premedication
     Dosage: UNK
  6. MICAFUNGIN [Concomitant]
     Active Substance: MICAFUNGIN SODIUM
     Dosage: UNK

REACTIONS (8)
  - Platelet count decreased [Recovered/Resolved]
  - Oxygen saturation decreased [Recovered/Resolved]
  - Pyrexia [Recovered/Resolved]
  - Chills [Recovered/Resolved]
  - Tremor [Recovered/Resolved]
  - Ocular icterus [Unknown]
  - Liver function test increased [Recovered/Resolved]
  - Hepatic function abnormal [Recovered/Resolved]
